FAERS Safety Report 4934100-4 (Version None)
Quarter: 2006Q1

REPORT INFORMATION
  Report Type: 
  Country: None (occurrence: None)
  Receive Date: 20060307
  Receipt Date: 20050331
  Transmission Date: 20060701
  Serious: Yes (Disabling)
  Sender: FDA-Public Use
  Company Number: US-ABBOTT-05P-163-0295890-00

PATIENT
  Sex: Female
  Weight: 63.56 kg

DRUGS (5)
  1. DEPAKOTE [Suspect]
     Indication: CONVULSION
     Route: 048
     Dates: start: 20030101
  2. DEPAKOTE [Suspect]
     Indication: AFFECTIVE DISORDER
  3. LAMOTRIGINE [Suspect]
     Indication: AFFECTIVE DISORDER
     Route: 048
     Dates: start: 20040801, end: 20040901
  4. DIPHENHYDRAMINE HYDROCHLORIDE [Concomitant]
     Indication: HYPERSENSITIVITY
     Route: 048
  5. LEVOTHYROXINE SODIUM [Concomitant]
     Indication: HYPOTHYROIDISM
     Route: 048

REACTIONS (5)
  - ABASIA [None]
  - DIFFICULTY IN WALKING [None]
  - RASH [None]
  - TREMOR [None]
  - URTICARIA [None]
